FAERS Safety Report 23612534 (Version 1)
Quarter: 2024Q1

REPORT INFORMATION
  Report Type: Spontaneous
  Country: JP (occurrence: JP)
  Receive Date: 20240308
  Receipt Date: 20240308
  Transmission Date: 20240410
  Serious: Yes (Hospitalization)
  Sender: FDA-Public Use
  Company Number: JP-Eisai-202309809_FYC_P_1

PATIENT
  Age: 15 Year
  Sex: Female

DRUGS (8)
  1. PERAMPANEL [Suspect]
     Active Substance: PERAMPANEL
     Indication: Temporal lobe epilepsy
     Dosage: DOSE AND FREQUENCY UNKNOWN
     Route: 048
  2. PERAMPANEL [Suspect]
     Active Substance: PERAMPANEL
     Dosage: FREQUENCY UNKNOWN
     Route: 048
  3. PERAMPANEL [Suspect]
     Active Substance: PERAMPANEL
     Dosage: DOSE AND FREQUENCY UNKNOWN
     Route: 048
  4. TOPIRAMATE [Suspect]
     Active Substance: TOPIRAMATE
     Indication: Temporal lobe epilepsy
     Route: 048
  5. TOPIRAMATE [Suspect]
     Active Substance: TOPIRAMATE
     Route: 048
  6. TOPIRAMATE [Suspect]
     Active Substance: TOPIRAMATE
     Route: 048
  7. RISPERIDONE [Concomitant]
     Active Substance: RISPERIDONE
     Indication: Schizophrenia
     Dosage: DOSE AND FREQUENCY UNKNOWN
     Route: 065
  8. OLANZAPINE [Concomitant]
     Active Substance: OLANZAPINE
     Indication: Schizophrenia
     Dosage: DOSE AND FREQUENCY UNKNOWN
     Route: 065

REACTIONS (4)
  - Suicide attempt [Recovered/Resolved]
  - Persecutory delusion [Recovering/Resolving]
  - Hallucination, auditory [Not Recovered/Not Resolved]
  - Anger [Recovered/Resolved]
